FAERS Safety Report 22391711 (Version 1)
Quarter: 2023Q2

REPORT INFORMATION
  Report Type: Spontaneous
  Country: US (occurrence: US)
  Receive Date: 20230601
  Receipt Date: 20230601
  Transmission Date: 20230722
  Serious: Yes (Other)
  Sender: FDA-Public Use
  Company Number: US-LEO Pharma-352379

PATIENT
  Age: 57 Year
  Sex: Male

DRUGS (8)
  1. OPZELURA [Concomitant]
     Active Substance: RUXOLITINIB PHOSPHATE
     Indication: Product used for unknown indication
     Dosage: DOSAGE : 1.5 % G
  2. ACETAMINOPHEN\CODEINE PHOSPHATE [Concomitant]
     Active Substance: ACETAMINOPHEN\CODEINE PHOSPHATE
     Indication: Product used for unknown indication
  3. AMOXICILLIN [Concomitant]
     Active Substance: AMOXICILLIN
     Indication: Product used for unknown indication
  4. TRIAMCINOLONE ACETONIDE [Concomitant]
     Active Substance: TRIAMCINOLONE ACETONIDE
     Indication: Product used for unknown indication
  5. DEVICE [Suspect]
     Active Substance: DEVICE
     Indication: Plasma cell myeloma
  6. ADBRY [Suspect]
     Active Substance: TRALOKINUMAB-LDRM
     Indication: Plasma cell myeloma
     Route: 058
     Dates: start: 202211
  7. ADBRY [Suspect]
     Active Substance: TRALOKINUMAB-LDRM
     Indication: Plasma cell myeloma
     Route: 058
     Dates: start: 202211
  8. METHIMAZOLE [Concomitant]
     Active Substance: METHIMAZOLE
     Indication: Product used for unknown indication

REACTIONS (5)
  - Tooth extraction [Unknown]
  - Product use in unapproved indication [Unknown]
  - Plasma cell myeloma [Unknown]
  - Tooth extraction [Unknown]
  - Swelling face [Unknown]

NARRATIVE: CASE EVENT DATE: 20230522
